FAERS Safety Report 4375018-8 (Version None)
Quarter: 2004Q2

REPORT INFORMATION
  Report Type: 
  Country: None (occurrence: None)
  Receive Date: 20040604
  Receipt Date: 20040524
  Transmission Date: 20050107
  Serious: Yes (Other)
  Sender: FDA-Public Use
  Company Number: 24028

PATIENT
  Age: 52 Year
  Sex: Female

DRUGS (1)
  1. METRONIDAZOLE [Suspect]
     Indication: VAGINAL DISCHARGE
     Dosage: (1 IN 1 DAY (S)
     Dates: start: 20040312, end: 20040507

REACTIONS (1)
  - ARTHRALGIA [None]
